FAERS Safety Report 7477142-X (Version None)
Quarter: 2011Q2

REPORT INFORMATION
  Report Type: 
  Country: None (occurrence: None)
  Receive Date: 20110512
  Receipt Date: 20110429
  Transmission Date: 20111010
  Serious: Yes (Other)
  Sender: FDA-Public Use
  Company Number: HR-MYLANLABS-2011S1009041

PATIENT
  Age: 60 Year
  Sex: Male

DRUGS (5)
  1. BISOPROLOL FUMARATE [Concomitant]
     Dosage: 2.5 MG/DAY
     Route: 065
  2. PANTOPRAZOLE [Concomitant]
     Dosage: 40 MG/DAY
     Route: 065
  3. ATORVASTATIN [Concomitant]
     Dosage: 20 MG/DAY
     Route: 065
  4. MELOXICAM [Suspect]
     Indication: OSTEOARTHRITIS
     Dosage: 15 MG/DAY
     Route: 065
     Dates: start: 20090101
  5. LOSARTAN [Concomitant]
     Dosage: 50 MG/DAY
     Route: 065

REACTIONS (1)
  - NEPHROTIC SYNDROME [None]
